FAERS Safety Report 9460640 (Version 2)
Quarter: 2013Q3

REPORT INFORMATION
  Report Type: Spontaneous
  Country: None (occurrence: None)
  Receive Date: 20130815
  Receipt Date: 20130820
  Transmission Date: 20140515
  Serious: Yes (Death)
  Sender: FDA-Public Use
  Company Number: PHHY2013PS087732

PATIENT
  Age: 29 Year
  Sex: Female
  Weight: 55 kg

DRUGS (13)
  1. EXJADE [Suspect]
     Indication: IRON OVERLOAD
     Dosage: 500 MG, 1X 4
     Route: 048
  2. DESFERAL [Suspect]
     Indication: IRON OVERLOAD
     Dosage: 40 MG/KG/DAY (5 VIALS DAILY)
     Route: 042
  3. ASA [Concomitant]
     Indication: THROMBOSIS
     Dosage: 1*1
     Route: 048
  4. COUMADINE [Concomitant]
     Indication: THROMBOSIS
     Dosage: 5 MG EOD, 2.5 MG EOD
     Route: 048
  5. EPANUTIN [Concomitant]
     Indication: CONVULSION
     Dosage: 1*3
     Route: 048
  6. CALCIMORE [Concomitant]
     Indication: MINERAL SUPPLEMENTATION
     Dosage: 2*5
     Route: 048
  7. CRESTOR [Concomitant]
     Indication: HYPERCHOLESTEROLAEMIA
     Dosage: 1*1
     Route: 048
  8. COLCHICINE [Concomitant]
     Indication: GOUTY ARTHRITIS
     Dosage: 1*1
     Route: 048
  9. ALLURAL [Concomitant]
     Indication: GOUTY ARTHRITIS
     Dosage: 1*1
     Route: 048
  10. NEXIUM//ESOMEPRAZOLE MAGNESIUM [Concomitant]
     Dosage: 1*1
     Route: 048
  11. HYDROXYUREA [Concomitant]
     Dosage: 1*1
     Route: 048
  12. ATORVASTATIN [Concomitant]
     Indication: HYPERCHOLESTEROLAEMIA
     Dosage: 1*1
     Route: 048
  13. CONCOR [Concomitant]
     Indication: HYPERTENSION
     Dosage: 1*1
     Route: 048

REACTIONS (4)
  - Pulmonary embolism [Fatal]
  - Congestive cardiomyopathy [Fatal]
  - Cerebrovascular accident [Fatal]
  - Hemiparesis [Fatal]
